FAERS Safety Report 9231486 (Version 1)
Quarter: 2013Q2

REPORT INFORMATION
  Report Type: Spontaneous
  Country: US (occurrence: US)
  Receive Date: 20130415
  Receipt Date: 20130415
  Transmission Date: 20140414
  Serious: Yes (Other)
  Sender: FDA-Public Use
  Company Number: US-GLAXOSMITHKLINE-A1019945A

PATIENT
  Age: 28 Year
  Sex: Female

DRUGS (2)
  1. LAMICTAL [Suspect]
     Indication: CONVULSION
     Route: 065
     Dates: start: 201212
  2. KEPPRA [Suspect]
     Indication: CONVULSION
     Route: 065

REACTIONS (4)
  - Convulsion [Unknown]
  - Uterine spasm [Unknown]
  - Uterine disorder [Unknown]
  - Exposure during pregnancy [Unknown]
